FAERS Safety Report 4366119-9 (Version None)
Quarter: 2004Q2

REPORT INFORMATION
  Report Type: 
  Country: None (occurrence: None)
  Receive Date: 20040526
  Receipt Date: 20040526
  Transmission Date: 20050107
  Serious: Yes (Other)
  Sender: FDA-Public Use
  Company Number: None

PATIENT
  Age: 20 Year
  Sex: Female

DRUGS (3)
  1. LEVAQUIN [Suspect]
     Indication: SINUSITIS
     Dates: start: 20040510, end: 20040511
  2. GUAIFENESIN [Concomitant]
  3. PSEUDOPHED [Concomitant]

REACTIONS (4)
  - ANXIETY [None]
  - FEAR [None]
  - FEELING ABNORMAL [None]
  - PARANOIA [None]
